FAERS Safety Report 7438379-9 (Version None)
Quarter: 2011Q2

REPORT INFORMATION
  Report Type: 
  Country: None (occurrence: None)
  Receive Date: 20110426
  Receipt Date: 20110330
  Transmission Date: 20111010
  Serious: Yes (Other)
  Sender: FDA-Public Use
  Company Number: US-BAYER-201034247NA

PATIENT
  Sex: Female

DRUGS (13)
  1. COLACE [Concomitant]
  2. URECHOLINE [Concomitant]
  3. BETHANECHOL [Concomitant]
  4. YASMIN [Suspect]
     Indication: PRODUCT USED FOR UNKNOWN INDICATION
     Route: 048
  5. BISACODYL [Concomitant]
  6. PREVACID [Concomitant]
  7. YAZ [Suspect]
     Indication: PRODUCT USED FOR UNKNOWN INDICATION
     Route: 048
  8. ALBUTEROL [Concomitant]
  9. PREVACID [Concomitant]
  10. PROZAC [Concomitant]
  11. MULTI-VITAMIN [Concomitant]
  12. BACTRIN [Concomitant]
  13. COUMADIN [Concomitant]

REACTIONS (3)
  - MYOCARDIAL INFARCTION [None]
  - PULMONARY EMBOLISM [None]
  - PAIN [None]
